FAERS Safety Report 6674776-7 (Version None)
Quarter: 2010Q2

REPORT INFORMATION
  Report Type: 
  Country: None (occurrence: None)
  Receive Date: 20100409
  Receipt Date: 20100331
  Transmission Date: 20101027
  Serious: Yes (Other)
  Sender: FDA-Public Use
  Company Number: US-BAYER-201010111BCC

PATIENT
  Age: 73 Year
  Sex: Female
  Weight: 72 kg

DRUGS (9)
  1. BRONKAID DUAL ACTION CAPLETS [Suspect]
     Indication: ASTHMA
     Dosage: TOTAL DAILY DOSE: 1 DF  UNIT DOSE: 1 DF
     Route: 048
     Dates: start: 20091201
  2. IBUPROFEN [Concomitant]
     Route: 065
  3. TYLENOL W/ CODEINE [Concomitant]
     Route: 065
  4. PROVENTIL L [Concomitant]
     Route: 065
  5. ASPIRIN [Concomitant]
     Route: 065
  6. SPIRIVA [Concomitant]
     Route: 065
     Dates: start: 20080101
  7. DUOMED [Concomitant]
     Route: 065
     Dates: start: 20070101
  8. PREDNAZON [Concomitant]
     Indication: CHRONIC OBSTRUCTIVE PULMONARY DISEASE
     Route: 065
     Dates: start: 20090101
  9. TYLENOL/CODEIN [Concomitant]
     Indication: MYALGIA
     Route: 065
     Dates: start: 20090101

REACTIONS (1)
  - BLOOD PRESSURE INCREASED [None]
